FAERS Safety Report 7034753-3 (Version None)
Quarter: 2010Q4

REPORT INFORMATION
  Report Type: 
  Country: None (occurrence: None)
  Receive Date: 20101008
  Receipt Date: 20100928
  Transmission Date: 20110411
  Serious: Yes (Other)
  Sender: FDA-Public Use
  Company Number: PHHY2010US64636

PATIENT
  Sex: Female

DRUGS (4)
  1. TEGRETOL-XR [Suspect]
     Dosage: 800
     Dates: start: 20051031
  2. LAMICTAL [Concomitant]
     Dosage: 400
  3. PRENATAL VITAMINS [Concomitant]
  4. FOLIC ACID [Concomitant]

REACTIONS (2)
  - ABORTION INDUCED [None]
  - DRUG EXPOSURE DURING PREGNANCY [None]
